FAERS Safety Report 11560527 (Version 1)
Quarter: 2015Q3

REPORT INFORMATION
  Report Type: Spontaneous
  Country: US (occurrence: US)
  Receive Date: 20150916
  Receipt Date: 20150916
  Transmission Date: 20151125
  Serious: No
  Sender: FDA-Public Use
  Company Number: US-ELI_LILLY_AND_COMPANY-US200809006446

PATIENT
  Age: 84 Year
  Sex: Female
  Weight: 54.42 kg

DRUGS (13)
  1. LASIX [Concomitant]
     Active Substance: FUROSEMIDE
  2. ASPIRIN. [Concomitant]
     Active Substance: ASPIRIN
  3. DIAZEPAM. [Concomitant]
     Active Substance: DIAZEPAM
  4. FORTEO [Suspect]
     Active Substance: TERIPARATIDE
     Indication: OSTEOPOROSIS
     Dosage: UNK, UNK
     Dates: start: 20080926, end: 2008
  5. POTASSIUM [Concomitant]
     Active Substance: POTASSIUM
  6. LIPITOR [Concomitant]
     Active Substance: ATORVASTATIN CALCIUM
  7. NEURONTIN [Concomitant]
     Active Substance: GABAPENTIN
  8. COREG [Concomitant]
     Active Substance: CARVEDILOL
  9. PREDNISONE. [Concomitant]
     Active Substance: PREDNISONE
  10. SYNTHROID [Concomitant]
     Active Substance: LEVOTHYROXINE SODIUM
  11. VALIUM [Concomitant]
     Active Substance: DIAZEPAM
  12. CAPOTEN [Concomitant]
     Active Substance: CAPTOPRIL
  13. AMBIEN [Concomitant]
     Active Substance: ZOLPIDEM TARTRATE

REACTIONS (11)
  - Neuropathy peripheral [Recovering/Resolving]
  - Malaise [Unknown]
  - Pain [Unknown]
  - Weight decreased [Unknown]
  - Heart rate increased [Recovered/Resolved]
  - Limb discomfort [Unknown]
  - Gait disturbance [Recovering/Resolving]
  - Feeling abnormal [Recovered/Resolved]
  - Eating disorder symptom [Unknown]
  - Asthenia [Not Recovered/Not Resolved]
  - Feeling abnormal [Not Recovered/Not Resolved]

NARRATIVE: CASE EVENT DATE: 2008
